FAERS Safety Report 9226702 (Version 3)
Quarter: 2013Q2

REPORT INFORMATION
  Report Type: Spontaneous
  Country: US (occurrence: US)
  Receive Date: 20130412
  Receipt Date: 20130628
  Transmission Date: 20140414
  Serious: No
  Sender: FDA-Public Use
  Company Number: US-PFIZER INC-2013114834

PATIENT
  Age: 35 Year
  Sex: Male
  Weight: 118 kg

DRUGS (4)
  1. PRISTIQ [Suspect]
     Indication: ANXIETY
     Dosage: 50 MG, 1X/DAY
     Route: 048
     Dates: start: 2011
  2. PRISTIQ [Suspect]
     Indication: DEPRESSION
     Dosage: HALF TABLET OF 100MG, 1X/DAY
     Dates: start: 2012
  3. PRISTIQ [Suspect]
     Indication: MOOD ALTERED
     Dosage: 100 MG, DAILY
  4. KLONOPIN [Concomitant]
     Indication: ANXIETY
     Dosage: UNK

REACTIONS (4)
  - Circumstance or information capable of leading to medication error [Unknown]
  - Headache [Not Recovered/Not Resolved]
  - Depression [Unknown]
  - Drug ineffective [Unknown]
